FAERS Safety Report 21948834 (Version 2)
Quarter: 2023Q1

REPORT INFORMATION
  Report Type: Report from Study
  Country: US (occurrence: US)
  Receive Date: 20230203
  Receipt Date: 20230302
  Transmission Date: 20230417
  Serious: Yes (Other)
  Sender: FDA-Public Use
  Company Number: US-ABBVIE-4292218

PATIENT
  Age: 50 Year
  Sex: Female

DRUGS (4)
  1. HUMIRA [Suspect]
     Active Substance: ADALIMUMAB
     Indication: Rheumatoid arthritis
     Dosage: STRENGTH: 40 MG, DOSE INCREASED, CITRATE FREE
     Route: 058
     Dates: start: 20200709
  2. HUMIRA [Suspect]
     Active Substance: ADALIMUMAB
     Dosage: STRENGTH: 40 MG, CITRATE FREE
     Route: 058
     Dates: start: 20200709
  3. HUMIRA [Suspect]
     Active Substance: ADALIMUMAB
     Dosage: STRENGTH: 40 MG, CITRATE FREE
     Route: 058
     Dates: start: 2022, end: 202301
  4. ENBREL [Suspect]
     Active Substance: ETANERCEPT
     Indication: Product used for unknown indication
     Route: 050

REACTIONS (8)
  - Foot operation [Unknown]
  - Pain in extremity [Unknown]
  - Foot fracture [Unknown]
  - Drug ineffective [Unknown]
  - Foot deformity [Unknown]
  - Device fastener issue [Unknown]
  - Pulmonary fibrosis [Unknown]
  - Asthenia [Unknown]

NARRATIVE: CASE EVENT DATE: 20230108
